FAERS Safety Report 13068915 (Version 27)
Quarter: 2023Q1

REPORT INFORMATION
  Report Type: Report from Study
  Country: BR (occurrence: BR)
  Receive Date: 20161228
  Receipt Date: 20230112
  Transmission Date: 20230417
  Serious: Yes (Other)
  Sender: FDA-Public Use
  Company Number: BR-GLAXOSMITHKLINE-BR2015GSK059950

PATIENT

DRUGS (5)
  1. BELIMUMAB [Suspect]
     Active Substance: BELIMUMAB
     Indication: Systemic lupus erythematosus
     Dosage: 120 MG
     Route: 042
     Dates: start: 20141117
  2. BELIMUMAB [Suspect]
     Active Substance: BELIMUMAB
     Dosage: UNK
     Route: 042
     Dates: start: 20150917
  3. BELIMUMAB [Suspect]
     Active Substance: BELIMUMAB
     Indication: Systemic lupus erythematosus
     Dosage: UNK
     Dates: start: 20141117
  4. HYDROXYCHLOROQUINE [Concomitant]
     Active Substance: HYDROXYCHLOROQUINE
     Indication: Product used for unknown indication
     Dosage: 400 MG, QOD, EVERY OTHER DAY
  5. COVID-19 VACCINE NOS [Concomitant]
     Active Substance: COVID-19 VACCINE NOS
     Indication: COVID-19 prophylaxis
     Dosage: UNK

REACTIONS (19)
  - Meniscus operation [Unknown]
  - Ligament disorder [Unknown]
  - Cartilage injury [Unknown]
  - Foreign body in throat [Unknown]
  - Nephrolithiasis [Unknown]
  - Oedema peripheral [Unknown]
  - Influenza [Not Recovered/Not Resolved]
  - Skin disorder [Unknown]
  - Sinusitis [Unknown]
  - Herpes virus infection [Unknown]
  - Renal disorder [Unknown]
  - Weight decreased [Unknown]
  - Varicose vein operation [Unknown]
  - Conjunctivitis [Unknown]
  - Inappropriate schedule of product administration [Unknown]
  - Product availability issue [Unknown]
  - Product dose omission issue [Unknown]
  - Overdose [Unknown]
  - Circumstance or information capable of leading to medication error [Recovered/Resolved]

NARRATIVE: CASE EVENT DATE: 20160101
